FAERS Safety Report 17195529 (Version 1)
Quarter: 2020Q1

REPORT INFORMATION
  Report Type: Spontaneous
  Country: US (occurrence: US)
  Receive Date: 20191223
  Receipt Date: 20191223
  Transmission Date: 20200409
  Serious: Yes (Other)
  Sender: FDA-Public Use
  Company Number: None

PATIENT
  Age: 20 Year
  Sex: Female

DRUGS (1)
  1. CIPROFLOXACIN. [Suspect]
     Active Substance: CIPROFLOXACIN

REACTIONS (5)
  - Pruritus [None]
  - Infusion site erythema [None]
  - Dyspnoea [None]
  - Infusion site pruritus [None]
  - Infusion site pain [None]

NARRATIVE: CASE EVENT DATE: 20191223
